FAERS Safety Report 4849040-9 (Version None)
Quarter: 2005Q4

REPORT INFORMATION
  Report Type: 
  Country: None (occurrence: None)
  Receive Date: 20051209
  Receipt Date: 20051130
  Transmission Date: 20060501
  Serious: Yes (Other)
  Sender: FDA-Public Use
  Company Number: GB-JNJFOC-20051200041

PATIENT
  Sex: Male
  Weight: 67 kg

DRUGS (11)
  1. REMICADE [Suspect]
     Indication: RHEUMATOID ARTHRITIS
     Route: 042
  2. SULFASALAZINE [Concomitant]
  3. LEFLUNOMIDE [Concomitant]
  4. AMITRIPTYLINE HCL [Concomitant]
  5. CELECOXIB [Concomitant]
  6. CO-CODAMOL [Concomitant]
  7. CO-CODAMOL [Concomitant]
  8. FRUSEMIDE [Concomitant]
  9. LANZOPRAZOLE [Concomitant]
  10. QUININE [Concomitant]
  11. TRAMADOL HCL [Concomitant]

REACTIONS (1)
  - BASAL CELL CARCINOMA [None]
